FAERS Safety Report 8856721 (Version 1)
Quarter: 2012Q4

REPORT INFORMATION
  Report Type: 
  Country: US (occurrence: US)
  Receive Date: 20121023
  Receipt Date: 20121023
  Transmission Date: 20130627
  Serious: No
  Sender: FDA-Public Use
  Company Number: US-AMGEN-USASP2012056134

PATIENT
  Sex: Female
  Weight: 74.83 kg

DRUGS (11)
  1. ENBREL [Suspect]
     Indication: PRODUCT USED FOR UNKNOWN INDICATION
     Dosage: 50 mg, qwk
     Route: 058
  2. VESICARE [Concomitant]
     Dosage: 5 mg, UNK
  3. LEVOTHYROXIN [Concomitant]
     Dosage: 100 mug, UNK
  4. FOLIC ACID [Concomitant]
     Dosage: 1 mg, UNK
  5. SINGULAIR [Concomitant]
     Dosage: 10 mg, UNK
  6. METHOTREXATE [Concomitant]
     Dosage: 50 mg/2ml
  7. VITAMIN D3 [Concomitant]
     Dosage: UNK
  8. FISH OIL [Concomitant]
     Dosage: UNK
  9. PROBIOTIC                          /06395501/ [Concomitant]
     Dosage: UNK
  10. VITAMIN B6 [Concomitant]
     Dosage: 50 mg, UNK
  11. BIOTIN [Concomitant]
     Dosage: 5000 UNK, UNK

REACTIONS (2)
  - Increased tendency to bruise [Unknown]
  - Blood blister [Unknown]
